FAERS Safety Report 11310941 (Version 10)
Quarter: 2019Q2

REPORT INFORMATION
  Report Type: Report from Study
  Country: DE (occurrence: DE)
  Receive Date: 20150726
  Receipt Date: 20190618
  Transmission Date: 20190711
  Serious: Yes (Hospitalization)
  Sender: FDA-Public Use
  Company Number: DE-ROCHE-1612391

PATIENT
  Age: 60 Year
  Sex: Female

DRUGS (15)
  1. ROACTEMRA [Suspect]
     Active Substance: TOCILIZUMAB
     Indication: TEMPORAL ARTERITIS
     Dosage: DATE OF LAST DOSE: 30/AUG/2015
     Route: 058
     Dates: start: 20150101
  2. ROACTEMRA [Suspect]
     Active Substance: TOCILIZUMAB
     Indication: OFF LABEL USE
  3. VICTOZA [Concomitant]
     Active Substance: LIRAGLUTIDE
     Indication: WEIGHT INCREASED
  4. L-THYROXIN [LEVOTHYROXINE] [Concomitant]
     Active Substance: LEVOTHYROXINE SODIUM
     Indication: OFF LABEL USE
  5. PANTOPRAZOL [PANTOPRAZOLE] [Concomitant]
     Active Substance: PANTOPRAZOLE
     Indication: OFF LABEL USE
     Route: 065
  6. VICTOZA [Concomitant]
     Active Substance: LIRAGLUTIDE
     Indication: OFF LABEL USE
  7. ROACTEMRA [Suspect]
     Active Substance: TOCILIZUMAB
     Indication: OFF LABEL USE
     Route: 058
     Dates: start: 20170906, end: 20171112
  8. CORTISONE [Concomitant]
     Active Substance: CORTISONE\HYDROCORTISONE
     Indication: OFF LABEL USE
     Route: 065
  9. BONVIVA [Concomitant]
     Active Substance: IBANDRONATE SODIUM
     Indication: OFF LABEL USE
     Route: 065
  10. BONVIVA [Concomitant]
     Active Substance: IBANDRONATE SODIUM
     Route: 065
     Dates: start: 20190605
  11. ROACTEMRA [Suspect]
     Active Substance: TOCILIZUMAB
     Route: 058
     Dates: start: 20171113
  12. ROACTEMRA [Suspect]
     Active Substance: TOCILIZUMAB
     Indication: TEMPORAL ARTERITIS
     Route: 042
     Dates: start: 201201
  13. CORTISONE [Suspect]
     Active Substance: CORTISONE\HYDROCORTISONE
     Indication: C-REACTIVE PROTEIN INCREASED
     Route: 065
  14. CORTISONE [Suspect]
     Active Substance: CORTISONE\HYDROCORTISONE
     Indication: OFF LABEL USE
  15. INSULIN [Concomitant]
     Active Substance: INSULIN NOS
     Indication: OFF LABEL USE

REACTIONS (6)
  - Lymphatic disorder [Not Recovered/Not Resolved]
  - Musculoskeletal stiffness [Recovered/Resolved]
  - Bronchitis [Recovered/Resolved]
  - Fluid retention [Not Recovered/Not Resolved]
  - Osteoporosis [Not Recovered/Not Resolved]
  - Off label use [Unknown]

NARRATIVE: CASE EVENT DATE: 20150101
